FAERS Safety Report 9067342 (Version 1)
Quarter: 2013Q1

REPORT INFORMATION
  Report Type: Spontaneous
  Country: US (occurrence: US)
  Receive Date: 20130202
  Receipt Date: 20130202
  Transmission Date: 20140127
  Serious: Yes (Hospitalization)
  Sender: FDA-Public Use
  Company Number: US-AMGEN-USASP2013006139

PATIENT
  Age: 61 Year
  Sex: Female

DRUGS (1)
  1. ENBREL [Suspect]
     Indication: RHEUMATOID ARTHRITIS
     Dosage: 50 MG, QWK
     Dates: start: 20040101, end: 201211

REACTIONS (4)
  - Cardiac valve disease [Recovered/Resolved]
  - Toothache [Not Recovered/Not Resolved]
  - Local swelling [Not Recovered/Not Resolved]
  - Dental caries [Recovered/Resolved]
